FAERS Safety Report 12836537 (Version 1)
Quarter: 2016Q4

REPORT INFORMATION
  Report Type: Spontaneous
  Country: US (occurrence: US)
  Receive Date: 20161011
  Receipt Date: 20161011
  Transmission Date: 20170207
  Serious: Yes (Hospitalization)
  Sender: FDA-Public Use
  Company Number: US-PERRIGO-16US020712

PATIENT
  Sex: Male

DRUGS (1)
  1. TUSSIN [Suspect]
     Active Substance: GUAIFENESIN
     Indication: PRODUCT USED FOR UNKNOWN INDICATION
     Dosage: LESS THAN 10 ML, SINGLE
     Route: 048
     Dates: start: 20161003, end: 20161003

REACTIONS (3)
  - Heart injury [Unknown]
  - Vomiting [Unknown]
  - Incorrect dose administered [Recovered/Resolved]

NARRATIVE: CASE EVENT DATE: 201610
